FAERS Safety Report 22376315 (Version 1)
Quarter: 2023Q2

REPORT INFORMATION
  Report Type: Spontaneous
  Country: US (occurrence: US)
  Receive Date: 20230527
  Receipt Date: 20230527
  Transmission Date: 20230721
  Serious: Yes (Other)
  Sender: FDA-Public Use
  Company Number: US-002147023-NVSC2023US117555

PATIENT
  Sex: Male

DRUGS (2)
  1. ILARIS [Suspect]
     Active Substance: CANAKINUMAB
     Indication: Still^s disease
     Dosage: UNK, OTHER (EVERY 8 WEEKS)
     Route: 058
     Dates: start: 202206
  2. ILARIS [Suspect]
     Active Substance: CANAKINUMAB
     Dosage: UNK, OTHER (EVERY 4 WEEKS)
     Route: 058

REACTIONS (1)
  - Still^s disease [Unknown]
